FAERS Safety Report 16864836 (Version 3)
Quarter: 2021Q3

REPORT INFORMATION
  Report Type: Report from Study
  Country: PA (occurrence: PA)
  Receive Date: 20190929
  Receipt Date: 20210823
  Transmission Date: 20211014
  Serious: Yes (Hospitalization, Other)
  Sender: FDA-Public Use
  Company Number: PHHY2018PA119570

PATIENT
  Sex: Male

DRUGS (3)
  1. GILENYA [Suspect]
     Active Substance: FINGOLIMOD HYDROCHLORIDE
     Dosage: 0.5 MG, QD
     Route: 065
     Dates: start: 201901
  2. GILENYA [Suspect]
     Active Substance: FINGOLIMOD HYDROCHLORIDE
     Dosage: 0.5 MG, QD
     Route: 048
     Dates: start: 20180703
  3. GILENYA [Suspect]
     Active Substance: FINGOLIMOD HYDROCHLORIDE
     Indication: MULTIPLE SCLEROSIS
     Dosage: 0.5 MG, QD
     Route: 065

REACTIONS (17)
  - Speech disorder [Unknown]
  - Discomfort [Unknown]
  - Dizziness [Unknown]
  - Fatigue [Unknown]
  - Gait disturbance [Recovered/Resolved]
  - Stress [Unknown]
  - Malaise [Unknown]
  - Tremor [Unknown]
  - Paraesthesia [Unknown]
  - Feeling hot [Unknown]
  - Vomiting [Unknown]
  - Multiple sclerosis relapse [Recovered/Resolved]
  - Dyskinesia [Recovered/Resolved]
  - Muscle spasms [Unknown]
  - Feeling abnormal [Unknown]
  - Neck pain [Unknown]
  - Muscle spasms [Recovered/Resolved]
